FAERS Safety Report 8797563 (Version 2)
Quarter: 2015Q1

REPORT INFORMATION
  Report Type: Report from Study
  Country: US (occurrence: US)
  Receive Date: 20120919
  Receipt Date: 20150319
  Transmission Date: 20150721
  Serious: Yes (Death)
  Sender: FDA-Public Use
  Company Number: US-ROCHE-1102303

PATIENT
  Sex: Male

DRUGS (13)
  1. LEUCOVORIN [Concomitant]
     Active Substance: LEUCOVORIN
     Route: 042
  2. TYLENOL [Concomitant]
     Active Substance: ACETAMINOPHEN
     Route: 048
  3. BENADRYL [Concomitant]
     Active Substance: DIPHENHYDRAMINE HYDROCHLORIDE
     Route: 042
  4. OXALIPLATIN. [Concomitant]
     Active Substance: OXALIPLATIN
     Route: 042
  5. AVASTIN [Suspect]
     Active Substance: BEVACIZUMAB
     Indication: COLON CANCER
     Route: 042
  6. 5-FLUOROURACIL [Concomitant]
     Active Substance: FLUOROURACIL
     Route: 042
  7. 5-FLUOROURACIL [Concomitant]
     Active Substance: FLUOROURACIL
     Route: 042
  8. 5-FLUOROURACIL [Concomitant]
     Active Substance: FLUOROURACIL
     Route: 042
  9. 5-FLUOROURACIL [Concomitant]
     Active Substance: FLUOROURACIL
     Route: 042
  10. ACTIVASE [Concomitant]
     Active Substance: ALTEPLASE
     Route: 042
  11. ANZEMET [Concomitant]
     Active Substance: DOLASETRON MESYLATE
     Route: 042
  12. DECADRON [Concomitant]
     Active Substance: DEXAMETHASONE
     Route: 042
  13. LEUCOVORIN [Concomitant]
     Active Substance: LEUCOVORIN
     Route: 042

REACTIONS (4)
  - Death [Fatal]
  - Nausea [Unknown]
  - Fatigue [Unknown]
  - Asthenia [Unknown]
